FAERS Safety Report 25641465 (Version 1)
Quarter: 2025Q3

REPORT INFORMATION
  Report Type: Report from Study
  Country: US (occurrence: US)
  Receive Date: 20250804
  Receipt Date: 20250804
  Transmission Date: 20251020
  Serious: No
  Sender: MALLINCKRODT
  Company Number: US-MALLINCKRODT-MNK202502307

PATIENT
  Age: 61 Year
  Sex: Female

DRUGS (3)
  1. CORTICOTROPIN [Suspect]
     Active Substance: CORTICOTROPIN
     Indication: Systemic lupus erythematosus
     Route: 058
     Dates: start: 202503
  2. OZEMPIC [Concomitant]
     Active Substance: SEMAGLUTIDE
  3. NOVOLOG [Concomitant]
     Active Substance: INSULIN ASPART

REACTIONS (2)
  - Adverse drug reaction [Unknown]
  - Contraindicated product administered [Unknown]

NARRATIVE: CASE EVENT DATE: 20250101
